FAERS Safety Report 15783591 (Version 1)
Quarter: 2019Q1

REPORT INFORMATION
  Report Type: Spontaneous
  Country: IE (occurrence: IE)
  Receive Date: 20190102
  Receipt Date: 20190102
  Transmission Date: 20190417
  Serious: Yes (Other)
  Sender: FDA-Public Use
  Company Number: PHHY2018IE198596

PATIENT
  Age: 68 Year
  Sex: Male

DRUGS (11)
  1. THEOPHYLLINE [Concomitant]
     Active Substance: THEOPHYLLINE ANHYDROUS
     Indication: ADDISON^S DISEASE
     Dosage: 200 MG, QD
     Route: 065
  2. MONTELUKAST [Concomitant]
     Active Substance: MONTELUKAST SODIUM
     Indication: ADDISON^S DISEASE
     Dosage: 10 MG, QD
     Route: 065
  3. COLECALCIFEROL [Concomitant]
     Active Substance: CHOLECALCIFEROL
     Indication: ADDISON^S DISEASE
     Dosage: UNK UNK, QD
     Route: 065
  4. PREDNISOLONE. [Concomitant]
     Active Substance: PREDNISOLONE
     Indication: ADDISON^S DISEASE
     Route: 048
  5. HYDROCORTISONE. [Suspect]
     Active Substance: HYDROCORTISONE
     Indication: ADDISON^S DISEASE
     Dosage: 15 MG, QD (IN THE MORNING)
     Route: 042
  6. CALCIUM CARBONATE. [Concomitant]
     Active Substance: CALCIUM CARBONATE
     Indication: ADDISON^S DISEASE
     Route: 065
  7. LANSOPRAZOLE. [Concomitant]
     Active Substance: LANSOPRAZOLE
     Indication: ADDISON^S DISEASE
     Dosage: 30 MG, UNK
     Route: 065
  8. TIOTROPIUM BROMIDE [Concomitant]
     Active Substance: TIOTROPIUM BROMIDE
     Indication: ADDISON^S DISEASE
     Dosage: 2.5 UG, QD
     Route: 055
  9. FLUTICASONE. [Suspect]
     Active Substance: FLUTICASONE
     Indication: ADDISON^S DISEASE
     Dosage: 250 UG, BID
     Route: 055
  10. HYDROCORTISONE. [Suspect]
     Active Substance: HYDROCORTISONE
     Dosage: 5 MG, QHS (IN THE NIGHT)
     Route: 042
  11. AZITHROMYCIN ANHYDROUS. [Concomitant]
     Active Substance: AZITHROMYCIN ANHYDROUS
     Indication: ADDISON^S DISEASE
     Dosage: 500 MG, UNK
     Route: 065

REACTIONS (6)
  - Ulcer [Recovering/Resolving]
  - Oedema [Recovering/Resolving]
  - Cellulitis [Recovering/Resolving]
  - Cryptococcosis [Recovering/Resolving]
  - Erythema [Recovering/Resolving]
  - Product use in unapproved indication [Unknown]
